FAERS Safety Report 10054873 (Version 2)
Quarter: 2014Q2

REPORT INFORMATION
  Report Type: Report from Study
  Country: MX (occurrence: MX)
  Receive Date: 20140402
  Receipt Date: 20140409
  Transmission Date: 20141212
  Serious: Yes (Death, Hospitalization, Other)
  Sender: FDA-Public Use
  Company Number: PHHY2014MX039241

PATIENT
  Age: 83 Year
  Sex: Male

DRUGS (6)
  1. STALEVO [Suspect]
     Indication: PARKINSON^S DISEASE
     Dosage: UNK UKN, UNK (STARTED WITH LOW DOSE)
     Route: 048
  2. STALEVO [Suspect]
     Dosage: UNK UKN, UNK (DOSE WAS INCREASED)
     Route: 048
  3. CYMBALTA [Concomitant]
     Dosage: UNK UKN, UNK
  4. EXELON [Concomitant]
     Indication: DEPRESSION
     Dosage: 1 DF, DAILY
     Route: 062
     Dates: start: 201312
  5. EXELON [Concomitant]
     Indication: MEMORY IMPAIRMENT
  6. EXELON [Concomitant]
     Indication: ELEVATED MOOD

REACTIONS (7)
  - Infarction [Fatal]
  - Pneumonia [Unknown]
  - Urinary tract infection [Unknown]
  - Mood altered [Unknown]
  - Abnormal behaviour [Unknown]
  - Irritability [Unknown]
  - Influenza [Unknown]
